FAERS Safety Report 15409882 (Version 2)
Quarter: 2018Q3

REPORT INFORMATION
  Report Type: Report from Study
  Country: JP (occurrence: JP)
  Receive Date: 20180920
  Receipt Date: 20180927
  Transmission Date: 20181010
  Serious: Yes (Death, Other)
  Sender: FDA-Public Use
  Company Number: JP-AMGEN-JPNNI2018130213

PATIENT
  Age: 84 Year
  Sex: Male

DRUGS (5)
  1. CALTAN [Concomitant]
     Active Substance: CALCIUM CARBONATE
     Dosage: UNK
  2. RENAGEL [Concomitant]
     Active Substance: SEVELAMER HYDROCHLORIDE
     Dosage: UNK
  3. FOSRENOL [Concomitant]
     Active Substance: LANTHANUM CARBONATE
     Dosage: UNK
  4. OXAROL [Concomitant]
     Active Substance: MAXACALCITOL
     Dosage: UNK
  5. ETELCALCETIDE [Suspect]
     Active Substance: ETELCALCETIDE
     Indication: HYPERPARATHYROIDISM SECONDARY
     Dosage: 5 MG, 3 TIMES/WK
     Route: 042
     Dates: start: 20170814, end: 20170929

REACTIONS (1)
  - Aortic aneurysm [Fatal]
